FAERS Safety Report 6131442-4 (Version None)
Quarter: 2009Q1

REPORT INFORMATION
  Report Type: 
  Country: None (occurrence: None)
  Receive Date: 20090325
  Receipt Date: 20080728
  Transmission Date: 20090719
  Serious: Yes (Death)
  Sender: FDA-Public Use
  Company Number: US-BRISTOL-MYERS SQUIBB COMPANY-14256655

PATIENT
  Age: 65 Year
  Sex: Male

DRUGS (1)
  1. ERBITUX [Suspect]
     Indication: OESOPHAGEAL CARCINOMA
     Dates: start: 20080212, end: 20080212

REACTIONS (1)
  - MALIGNANT NEOPLASM PROGRESSION [None]
